FAERS Safety Report 17403409 (Version 1)
Quarter: 2020Q1

REPORT INFORMATION
  Report Type: Report from Study
  Country: US (occurrence: US)
  Receive Date: 20200211
  Receipt Date: 20200211
  Transmission Date: 20200409
  Serious: Yes (Hospitalization)
  Sender: FDA-Public Use
  Company Number: US-AMGEN-USACT2019011398

PATIENT
  Age: 2 Year
  Sex: Male
  Weight: 11.5 kg

DRUGS (7)
  1. FLINTSTONES [Concomitant]
     Dosage: 2 UNK
     Route: 048
     Dates: start: 20170301, end: 20181011
  2. KETOROLAC [Concomitant]
     Active Substance: KETOROLAC TROMETHAMINE
     Dosage: 0.5 MILLIGRAM/KILOGRAM
     Route: 042
     Dates: start: 20181006, end: 20181006
  3. TYLENOL [Concomitant]
     Active Substance: ACETAMINOPHEN
     Dosage: 5 MILLILITER
     Route: 048
     Dates: start: 20181029, end: 20190101
  4. DENOSUMAB [Suspect]
     Active Substance: DENOSUMAB
     Indication: OSTEOGENESIS IMPERFECTA
     Dosage: 0.16 ML, Q6MO
     Route: 058
     Dates: start: 20181003
  5. CHOLECALCIFEROL [Concomitant]
     Active Substance: CHOLECALCIFEROL
     Dosage: 800 INTERNATIONAL UNIT
     Route: 048
     Dates: start: 20181004
  6. CALCIUM CARBONATE. [Concomitant]
     Active Substance: CALCIUM CARBONATE
     Dosage: 431.25 MILLIGRAM
     Route: 048
     Dates: start: 20181004, end: 20190924
  7. MORPHINE [Concomitant]
     Active Substance: MORPHINE
     Dosage: 1 MILLIGRAM
     Route: 042
     Dates: start: 20181005, end: 20181231

REACTIONS (1)
  - Femur fracture [Recovered/Resolved]

NARRATIVE: CASE EVENT DATE: 20181231
